APPROVED DRUG PRODUCT: OTREXUP PFS
Active Ingredient: METHOTREXATE
Strength: 15MG/0.6ML (15MG/0.6ML)
Dosage Form/Route: SOLUTION;SUBCUTANEOUS
Application: N204824 | Product #010
Applicant: ASSERTIO SPECIALTY PHARMACEUTICALS LLC
Approved: May 31, 2017 | RLD: Yes | RS: No | Type: DISCN